FAERS Safety Report 6970177-2 (Version None)
Quarter: 2010Q3

REPORT INFORMATION
  Report Type: 
  Country: None (occurrence: None)
  Receive Date: 20100908
  Receipt Date: 20100827
  Transmission Date: 20110219
  Serious: Yes (Hospitalization)
  Sender: FDA-Public Use
  Company Number: FR-SANOFI-AVENTIS-2010SA051073

PATIENT
  Age: 63 Year
  Sex: Female

DRUGS (7)
  1. CLAFORAN [Suspect]
     Indication: SEPSIS
     Route: 042
     Dates: start: 20100331, end: 20100407
  2. FLAGYL [Suspect]
     Indication: SEPSIS
     Route: 042
     Dates: start: 20100331, end: 20100407
  3. PREVISCAN [Suspect]
     Route: 048
     Dates: start: 20070101, end: 20100321
  4. PREVISCAN [Suspect]
     Route: 048
     Dates: start: 20100412, end: 20100422
  5. AMIKIN [Suspect]
     Indication: SEPSIS
     Route: 042
     Dates: start: 20100409, end: 20100412
  6. FORTUM /UNK/ [Suspect]
     Indication: SEPSIS
     Route: 042
     Dates: start: 20100409, end: 20100412
  7. AMOXICILLIN [Concomitant]
     Indication: SEPSIS
     Dates: start: 20100408, end: 20100409

REACTIONS (2)
  - ANAEMIA [None]
  - HAEMATOMA [None]
